FAERS Safety Report 11183856 (Version 4)
Quarter: 2015Q3

REPORT INFORMATION
  Report Type: Report from Study
  Country: US (occurrence: US)
  Receive Date: 20150612
  Receipt Date: 20150820
  Transmission Date: 20151125
  Serious: Yes (Death, Hospitalization)
  Sender: FDA-Public Use
  Company Number: US-BAYER-2015-316220

PATIENT
  Age: 65 Year
  Sex: Male
  Weight: 83.9 kg

DRUGS (13)
  1. VITAMIN D2 [Concomitant]
     Active Substance: ERGOCALCIFEROL
  2. DOXAZOSIN [Concomitant]
     Active Substance: DOXAZOSIN\DOXAZOSIN MESYLATE
  3. LATANOPROST. [Concomitant]
     Active Substance: LATANOPROST
  4. FLEXERIL [Concomitant]
     Active Substance: CYCLOBENZAPRINE HYDROCHLORIDE
  5. STIVARGA [Suspect]
     Active Substance: REGORAFENIB
     Indication: COLON CANCER
     Dosage: DOSE 80MG (DAILY FOR 21 DAYS THEN 7 DAYS OFF)
     Route: 048
     Dates: start: 20150313
  6. METOPROLOL [Concomitant]
     Active Substance: METOPROLOL
  7. LOSARTAN. [Concomitant]
     Active Substance: LOSARTAN
  8. CALCIUM [Concomitant]
     Active Substance: CALCIUM
  9. STIVARGA [Suspect]
     Active Substance: REGORAFENIB
     Indication: COLON CANCER
     Dosage: 160 MG DAILY FOR 21 DAYS ON, 7 DAYS OFF, REPEAT CYCLE EVERY 28 DAYS
     Route: 048
     Dates: start: 20150312
  10. STIVARGA [Suspect]
     Active Substance: REGORAFENIB
     Indication: NON-SMALL CELL LUNG CANCER
     Dosage: 160 MG DAILY FOR 21 DAYS ON, 7 DAYS OFF, REPEAT CYCLE EVERY 28 DAYS
     Dates: start: 20150423
  11. SIMVASTATIN. [Concomitant]
     Active Substance: SIMVASTATIN
  12. NORVASC [Concomitant]
     Active Substance: AMLODIPINE BESYLATE
  13. FINASTERIDE. [Concomitant]
     Active Substance: FINASTERIDE

REACTIONS (3)
  - Blood count abnormal [Unknown]
  - Death [Fatal]
  - Fluid retention [Unknown]

NARRATIVE: CASE EVENT DATE: 20150605
